FAERS Safety Report 7916649-5 (Version None)
Quarter: 2011Q4

REPORT INFORMATION
  Report Type: 
  Country: None (occurrence: None)
  Receive Date: 20111114
  Receipt Date: 20111102
  Transmission Date: 20120403
  Serious: Yes (Life-Threatening, Hospitalization, Disabling)
  Sender: FDA-Public Use
  Company Number: GER/GER/11/0021867

PATIENT
  Age: 70 Year
  Sex: Male

DRUGS (6)
  1. AMLODIPINE [Concomitant]
  2. TORSEMIDE [Concomitant]
  3. CANDESARTAN CILEXETIL [Concomitant]
  4. ASPIRIN [Concomitant]
  5. CLOPIDOGREL [Suspect]
     Indication: ACUTE CORONARY SYNDROME
     Dosage: 75 MG, 1 IN 1 D, ORAL
     Route: 048
     Dates: start: 20110222, end: 20110309
  6. ISOPTIN [Concomitant]

REACTIONS (3)
  - RENAL FAILURE [None]
  - HAEMOLYTIC URAEMIC SYNDROME [None]
  - MULTI-ORGAN FAILURE [None]
